FAERS Safety Report 9666010 (Version 1)
Quarter: 2013Q4

REPORT INFORMATION
  Report Type: Spontaneous
  Country: US (occurrence: None)
  Receive Date: 20131101
  Receipt Date: 20131101
  Transmission Date: 20140711
  Serious: Yes (Life-Threatening)
  Sender: FDA-Public Use
  Company Number: None

PATIENT
  Age: 66 Year
  Sex: Male
  Weight: 89.3 kg

DRUGS (1)
  1. IOHEXOL [Suspect]
     Dates: start: 20131030, end: 20131030

REACTIONS (5)
  - Rash [None]
  - Unresponsive to stimuli [None]
  - Cardio-respiratory arrest [None]
  - Pulseless electrical activity [None]
  - Anaphylactic reaction [None]
